FAERS Safety Report 23367504 (Version 1)
Quarter: 2024Q1

REPORT INFORMATION
  Report Type: Report from Study
  Country: US (occurrence: US)
  Receive Date: 20240104
  Receipt Date: 20240104
  Transmission Date: 20240410
  Serious: Yes (Hospitalization)
  Sender: FDA-Public Use
  Company Number: US-Eisai-EC-2024-156372

PATIENT
  Age: 70 Year
  Sex: Male

DRUGS (5)
  1. LENVIMA [Suspect]
     Active Substance: LENVATINIB
     Indication: Renal cancer
     Dosage: HELD THE MEDICATION FOR 1 WEEK
     Route: 048
     Dates: start: 20230707, end: 20230713
  2. LENVIMA [Suspect]
     Active Substance: LENVATINIB
     Dosage: MEDICATION WAS HELD FOR ONE WEEKEND.
     Route: 048
     Dates: start: 202307
  3. LENVIMA [Suspect]
     Active Substance: LENVATINIB
     Route: 048
     Dates: end: 202308
  4. LENVIMA [Suspect]
     Active Substance: LENVATINIB
     Dosage: REDUCED DOSE OF LENVIMA 10 MG DAILY TO START AFTER CURRENT 14 MG SUPPLY IS EXHAUSTED
     Route: 048
     Dates: start: 20230907
  5. LENVIMA [Suspect]
     Active Substance: LENVATINIB
     Dosage: REDUCED DOSE OF LENVIMA 10 MG DAILY TO START AFTER CURRENT 14 MG SUPPLY IS EXHAUSTED
     Route: 048

REACTIONS (2)
  - Haematemesis [Recovering/Resolving]
  - Diarrhoea [Recovering/Resolving]

NARRATIVE: CASE EVENT DATE: 20230101
